FAERS Safety Report 6241739-5 (Version None)
Quarter: 2009Q2

REPORT INFORMATION
  Report Type: 
  Country: None (occurrence: None)
  Receive Date: 20090623
  Receipt Date: 20070613
  Transmission Date: 20091009
  Serious: Yes (Other)
  Sender: FDA-Public Use
  Company Number: ES-ROCHE-502414

PATIENT
  Age: 35 Year
  Sex: Female

DRUGS (2)
  1. MEFLOQUINE HYDROCHLORIDE [Suspect]
     Indication: MALARIA PROPHYLAXIS
     Route: 065
     Dates: start: 20060305
  2. HEPATITIS B VACCINE [Concomitant]
     Dates: start: 20060301

REACTIONS (3)
  - ERYTHEMA [None]
  - HEPATITIS TOXIC [None]
  - SKIN EXFOLIATION [None]
